FAERS Safety Report 8778472 (Version 8)
Quarter: 2013Q3

REPORT INFORMATION
  Report Type: Report from Study
  Country: GB (occurrence: GB)
  Receive Date: 20120912
  Receipt Date: 20130925
  Transmission Date: 20140515
  Serious: Yes (Hospitalization, Other)
  Sender: FDA-Public Use
  Company Number: GB-VERTEX PHARMACEUTICAL INC.-2012-021060

PATIENT
  Age: 55 Year
  Sex: Female

DRUGS (7)
  1. VX-950 (TELAPREVIR) [Suspect]
     Indication: HEPATITIS C
     Dosage: 750 MG, TID
     Route: 048
     Dates: start: 20120803
  2. VX-950 (TELAPREVIR) [Suspect]
     Dosage: UNK
     Route: 048
     Dates: start: 20120815, end: 20121028
  3. RIBAVIRIN [Suspect]
     Indication: HEPATITIS C
     Dosage: UNK, BID
     Route: 048
     Dates: start: 20120706
  4. RIBAVIRIN [Suspect]
     Dosage: UNK
     Route: 048
  5. RIBAVIRIN [Suspect]
     Dosage: 600 MG, UNK
     Route: 048
     Dates: start: 20121107
  6. PEG INTERFERON [Suspect]
     Indication: HEPATITIS C
     Dosage: DOSAGE FORM: INJECTION
  7. PEG INTERFERON [Suspect]
     Dosage: UNK, QW
     Route: 058
     Dates: start: 20121106

REACTIONS (13)
  - Depression [Not Recovered/Not Resolved]
  - Pyrexia [Unknown]
  - Anaemia [Not Recovered/Not Resolved]
  - Proctalgia [Not Recovered/Not Resolved]
  - Rash erythematous [Recovered/Resolved]
  - Melanocytic naevus [Not Recovered/Not Resolved]
  - Lethargy [Not Recovered/Not Resolved]
  - Rash [Recovered/Resolved]
  - Dry skin [Not Recovered/Not Resolved]
  - Pruritus [Not Recovered/Not Resolved]
  - Nausea [Not Recovered/Not Resolved]
  - Vomiting [Unknown]
  - Anorectal discomfort [Not Recovered/Not Resolved]
